FAERS Safety Report 13347092 (Version 1)
Quarter: 2017Q1

REPORT INFORMATION
  Report Type: Spontaneous
  Country: CN (occurrence: CN)
  Receive Date: 20170317
  Receipt Date: 20170317
  Transmission Date: 20170428
  Serious: Yes (Hospitalization)
  Sender: FDA-Public Use
  Company Number: CN-PFIZER INC-2017116587

PATIENT
  Age: 67 Year
  Sex: Female
  Weight: 59 kg

DRUGS (3)
  1. YOUJIN [Suspect]
     Active Substance: METHYLPREDNISOLONE
     Dosage: 24 MG, DAILY
     Route: 048
     Dates: start: 20161116
  2. MEDROL [Suspect]
     Active Substance: METHYLPREDNISOLONE
     Indication: PEMPHIGUS
     Dosage: 8 MG, 3X/DAY
     Route: 048
     Dates: start: 20161205, end: 20161209
  3. YOUJIN [Suspect]
     Active Substance: METHYLPREDNISOLONE
     Indication: PEMPHIGUS
     Dosage: 16 MG, 4X/DAY
     Route: 048
     Dates: start: 20161031, end: 20161115

REACTIONS (3)
  - Lipohypertrophy [Unknown]
  - Blood glucose abnormal [Unknown]
  - Cushingoid [Unknown]

NARRATIVE: CASE EVENT DATE: 20161107
